FAERS Safety Report 9439317 (Version 1)
Quarter: 2013Q3

REPORT INFORMATION
  Report Type: Spontaneous
  Country: US (occurrence: US)
  Receive Date: 20130804
  Receipt Date: 20130804
  Transmission Date: 20140515
  Serious: No
  Sender: FDA-Public Use
  Company Number: US-B.I. PHARMACEUTICALS,INC./RIDGEFIELD-2013-BI-22893BP

PATIENT
  Age: 78 Year
  Sex: Male
  Weight: 74 kg

DRUGS (12)
  1. SPIRIVA [Suspect]
     Indication: CHRONIC OBSTRUCTIVE PULMONARY DISEASE
     Dosage: 18 MCG
     Route: 055
  2. DIGOXIN [Concomitant]
     Indication: CARDIAC MURMUR
     Dosage: 0.125 MG
     Route: 048
  3. FIBER CAPSULE [Concomitant]
     Route: 048
  4. OMEGA 3 [Concomitant]
     Route: 048
  5. TOPROL [Concomitant]
     Indication: HYPERTENSION
     Dosage: 100 MG
     Route: 048
  6. SIMVASTATIN [Concomitant]
     Indication: BLOOD CHOLESTEROL INCREASED
     Dosage: 20 MG
     Route: 048
  7. DIOVAN [Concomitant]
     Indication: HYPERTENSION
     Dosage: 160 MG
     Route: 048
  8. PROBIOTICS [Concomitant]
     Route: 048
  9. WARFARIN [Concomitant]
     Indication: CARDIAC MURMUR
     Dosage: 2 MG
     Route: 048
  10. COQ10 [Concomitant]
     Route: 048
  11. IRON [Concomitant]
     Route: 048
  12. EYE SUPPORT [Concomitant]
     Route: 048

REACTIONS (7)
  - Dry mouth [Not Recovered/Not Resolved]
  - Oral candidiasis [Recovered/Resolved]
  - Helicobacter infection [Recovered/Resolved]
  - Dyspnoea [Recovered/Resolved]
  - Insomnia [Not Recovered/Not Resolved]
  - Product quality issue [Recovered/Resolved]
  - Product quality issue [Recovered/Resolved]
